FAERS Safety Report 13188884 (Version 1)
Quarter: 2017Q1

REPORT INFORMATION
  Report Type: Spontaneous
  Country: US (occurrence: US)
  Receive Date: 20170203
  Receipt Date: 20170203
  Transmission Date: 20170428
  Serious: No
  Sender: FDA-Public Use
  Company Number: None

PATIENT
  Age: 33 Year
  Sex: Female
  Weight: 64.35 kg

DRUGS (3)
  1. ZINC. [Concomitant]
     Active Substance: ZINC
  2. IBROFEN [Concomitant]
  3. PROAIR HFA [Suspect]
     Active Substance: ALBUTEROL SULFATE
     Indication: RESPIRATION ABNORMAL
     Dosage: QUANTITY:198 INHALATION(S);?
     Route: 055
     Dates: start: 20170202, end: 20170203

REACTIONS (5)
  - Quality of life decreased [None]
  - Influenza [None]
  - Product label issue [None]
  - Drug ineffective [None]
  - Pain [None]

NARRATIVE: CASE EVENT DATE: 20170202
